FAERS Safety Report 13554453 (Version 1)
Quarter: 2017Q2

REPORT INFORMATION
  Report Type: Spontaneous
  Country: US (occurrence: US)
  Receive Date: 20170517
  Receipt Date: 20170517
  Transmission Date: 20170830
  Serious: Yes (Other)
  Sender: FDA-Public Use
  Company Number: None

PATIENT
  Age: 62 Year
  Sex: Female
  Weight: 68.95 kg

DRUGS (1)
  1. OLMESARTAN 20 MG SUN PHARMACEUTICAL [Suspect]
     Active Substance: OLMESARTAN MEDOXOMIL
     Indication: HYPERTENSION
     Dates: start: 201701

REACTIONS (5)
  - Product substitution issue [None]
  - Ocular discomfort [None]
  - Eye pain [None]
  - Dry eye [None]
  - Sleep disorder [None]
